FAERS Safety Report 21219621 (Version 2)
Quarter: 2022Q3

REPORT INFORMATION
  Report Type: Spontaneous
  Country: US (occurrence: US)
  Receive Date: 20220817
  Receipt Date: 20220825
  Transmission Date: 20221026
  Serious: Yes (Hospitalization, Other)
  Sender: FDA-Public Use
  Company Number: US-MLMSERVICE-20220801-3707466-1

PATIENT
  Age: 14 Year
  Sex: Male

DRUGS (9)
  1. METHOTREXATE [Suspect]
     Active Substance: METHOTREXATE
     Indication: T-cell type acute leukaemia
     Dosage: 15 MILLIGRAM
     Route: 037
  2. HYDROCORTISONE [Concomitant]
     Active Substance: HYDROCORTISONE
     Indication: T-cell type acute leukaemia
     Dosage: 15 MILLIGRAM
     Route: 037
  3. CYTARABINE [Concomitant]
     Active Substance: CYTARABINE
     Indication: T-cell type acute leukaemia
     Dosage: 30 MILLIGRAM
     Route: 037
  4. DEXTROMETHORPHAN [Concomitant]
     Active Substance: DEXTROMETHORPHAN
     Indication: Product used for unknown indication
     Dosage: UNK
     Route: 065
  5. OLANZAPINE [Concomitant]
     Active Substance: OLANZAPINE
     Indication: Substance-induced psychotic disorder
     Dosage: 10 MILLIGRAM, ONCE A DAY
     Route: 065
  6. LORAZEPAM [Concomitant]
     Active Substance: LORAZEPAM
     Indication: Catatonia
     Dosage: UNK
     Route: 065
  7. VALPROIC ACID [Concomitant]
     Active Substance: VALPROIC ACID
     Indication: Mania
     Dosage: 250 MILLIGRAM, TWO TIMES A DAY
     Route: 065
  8. VALPROIC ACID [Concomitant]
     Active Substance: VALPROIC ACID
     Indication: Agitation
  9. QUETIAPINE [Concomitant]
     Active Substance: QUETIAPINE
     Indication: Psychotic disorder
     Dosage: UNK
     Route: 065

REACTIONS (5)
  - Substance-induced psychotic disorder [Recovering/Resolving]
  - Hallucination [Recovering/Resolving]
  - Agitation [Recovering/Resolving]
  - Logorrhoea [Recovering/Resolving]
  - Cognitive disorder [Recovering/Resolving]
